FAERS Safety Report 19147323 (Version 1)
Quarter: 2021Q2

REPORT INFORMATION
  Report Type: Spontaneous
  Country: US (occurrence: US)
  Receive Date: 20210416
  Receipt Date: 20210416
  Transmission Date: 20210717
  Serious: Yes (Hospitalization, Other)
  Sender: FDA-Public Use
  Company Number: US-JNJFOC-20210422907

PATIENT
  Age: 32 Year
  Sex: Male

DRUGS (1)
  1. IMODIUM [Suspect]
     Active Substance: LOPERAMIDE HYDROCHLORIDE
     Indication: DIARRHOEA
     Dosage: 50 TO 60 PILLS
     Route: 048

REACTIONS (9)
  - Constipation [Unknown]
  - Nausea [Unknown]
  - Vomiting [Unknown]
  - Syncope [Unknown]
  - Chills [Unknown]
  - Abdominal pain [Unknown]
  - Bundle branch block right [Unknown]
  - Bradycardia [Unknown]
  - Drug abuse [Unknown]
